FAERS Safety Report 6275127-2 (Version None)
Quarter: 2009Q3

REPORT INFORMATION
  Report Type: 
  Country: None (occurrence: None)
  Receive Date: 20090721
  Receipt Date: 20090717
  Transmission Date: 20100115
  Serious: Yes (Life-Threatening)
  Sender: FDA-Public Use
  Company Number: GB-ASTRAZENECA-2009SE05114

PATIENT
  Age: 77 Year
  Sex: Male

DRUGS (9)
  1. OMEPRAZOLE [Suspect]
     Route: 048
     Dates: end: 20080101
  2. ALENDRONIC ACID [Concomitant]
     Route: 048
  3. AMLODIPINE [Concomitant]
     Route: 048
  4. CODEINE PHOSPHATE [Concomitant]
  5. LEVOTHYROXINE SODIUM [Concomitant]
     Route: 048
  6. PARACETAMOL [Concomitant]
  7. PREDNISOLONE [Concomitant]
  8. RANITIDINE [Concomitant]
     Route: 048
  9. SIMVASTATIN [Concomitant]

REACTIONS (2)
  - RENAL FAILURE CHRONIC [None]
  - TUBULOINTERSTITIAL NEPHRITIS [None]
